FAERS Safety Report 10053420 (Version 2)
Quarter: 2014Q2

REPORT INFORMATION
  Report Type: Spontaneous
  Country: US (occurrence: US)
  Receive Date: 20140402
  Receipt Date: 20140509
  Transmission Date: 20141212
  Serious: Yes (Other)
  Sender: FDA-Public Use
  Company Number: US-TEVA-472876USA

PATIENT
  Age: 36 Year
  Sex: Female
  Weight: 48.58 kg

DRUGS (2)
  1. PARAGARD 380A [Suspect]
     Indication: CONTRACEPTION
     Route: 015
     Dates: start: 20070319, end: 20140326
  2. NASONEX [Concomitant]
     Indication: HYPERSENSITIVITY

REACTIONS (3)
  - Pregnancy with contraceptive device [Unknown]
  - Drug ineffective [Unknown]
  - Device breakage [Not Recovered/Not Resolved]
